FAERS Safety Report 6471410-6 (Version None)
Quarter: 2009Q4

REPORT INFORMATION
  Report Type: 
  Country: None (occurrence: None)
  Receive Date: 20091203
  Receipt Date: 20080408
  Transmission Date: 20100525
  Serious: Yes (Death, Life-Threatening, Other)
  Sender: FDA-Public Use
  Company Number: JP-ELI_LILLY_AND_COMPANY-JP200802005432

PATIENT
  Sex: Female
  Weight: 47 kg

DRUGS (21)
  1. ZYPREXA [Suspect]
     Indication: SCHIZOPHRENIA
     Dosage: 10 MG, DAILY (1/D)
     Route: 048
     Dates: start: 20050613, end: 20050620
  2. ZYPREXA [Suspect]
     Dosage: 10 MG, DAILY (1/D)
     Route: 048
     Dates: start: 20050704, end: 20050815
  3. ZYPREXA [Suspect]
     Dosage: 20 MG, DAILY (1/D)
     Route: 048
     Dates: start: 20050816, end: 20061211
  4. ZYPREXA [Suspect]
     Dosage: 20 MG, DAILY (1/D)
     Route: 048
     Dates: start: 20061212, end: 20071209
  5. ZYPREXA [Suspect]
     Dosage: 30 MG, DAILY (1/D)
     Route: 048
     Dates: start: 20071210, end: 20071216
  6. ZYPREXA [Suspect]
     Dosage: 40 MG, DAILY (1/D)
     Route: 048
     Dates: start: 20071217
  7. LEVOTOMIN [Concomitant]
     Indication: SCHIZOPHRENIA
     Dosage: 350 MG, DAILY (1/D)
     Route: 048
     Dates: end: 20070325
  8. LEVOTOMIN [Concomitant]
     Dosage: 425 MG, DAILY (1/D)
     Route: 048
     Dates: start: 20070326, end: 20070401
  9. LEVOTOMIN [Concomitant]
     Dosage: 500 MG, DAILY (1/D)
     Route: 048
     Dates: start: 20070402
  10. VEGETAMIN A [Concomitant]
     Indication: INSOMNIA
     Dosage: 1 D/F, DAILY (1/D)
     Route: 048
  11. NITRAZEPAM [Concomitant]
     Indication: INSOMNIA
     Dosage: 5 MG, DAILY (1/D)
     Route: 048
  12. BARNETIL [Concomitant]
     Indication: SCHIZOPHRENIA
     Dosage: 1800 MG, DAILY (1/D)
     Route: 048
     Dates: start: 20050609
  13. SERENACE [Concomitant]
     Indication: SCHIZOPHRENIA
     Dosage: 27 MG, DAILY (1/D)
     Route: 048
     Dates: end: 20070513
  14. SERENACE [Concomitant]
     Dosage: 18 MG, DAILY (1/D)
     Route: 048
     Dates: start: 20070514, end: 20070610
  15. SERENACE [Concomitant]
     Dosage: 9 MG, DAILY (1/D)
     Route: 048
     Dates: start: 20070611, end: 20070624
  16. SERENACE [Concomitant]
     Dosage: 4.5 MG, DAILY (1/D)
     Route: 048
     Dates: start: 20070625, end: 20070708
  17. SERENACE [Concomitant]
     Dosage: 2.25 MG, DAILY (1/D)
     Route: 048
     Dates: start: 20070709, end: 20070722
  18. SERENACE [Concomitant]
     Dosage: 4.5 MG, DAILY (1/D)
     Route: 048
     Dates: start: 20070723, end: 20071209
  19. TASMOLIN [Concomitant]
     Indication: EXTRAPYRAMIDAL DISORDER
     Dosage: 3 MG, DAILY (1/D)
     Route: 048
  20. SENEVACUL [Concomitant]
     Indication: CONSTIPATION
     Dosage: 7 D/F, DAILY (1/D)
     Route: 048
  21. MAGMITT [Concomitant]
     Indication: CONSTIPATION
     Dosage: 6 D/F, DAILY (1/D)
     Route: 048
     Dates: start: 20070723

REACTIONS (8)
  - BLOOD POTASSIUM DECREASED [None]
  - DRUG INEFFECTIVE [None]
  - ELECTROCARDIOGRAM QT PROLONGED [None]
  - FAECAL INCONTINENCE [None]
  - MULTIPLE DRUG OVERDOSE [None]
  - PYREXIA [None]
  - SCHIZOPHRENIA [None]
  - SHOCK [None]
